FAERS Safety Report 6627814-1 (Version None)
Quarter: 2010Q1

REPORT INFORMATION
  Report Type: 
  Country: None (occurrence: None)
  Receive Date: 20100311
  Receipt Date: 20100305
  Transmission Date: 20100710
  Serious: Yes (Other)
  Sender: FDA-Public Use
  Company Number: NO-EISAI INC.-E2020-06043-SPO-NO

PATIENT
  Age: 87 Year
  Sex: Male

DRUGS (4)
  1. ARICEPT [Suspect]
     Route: 048
     Dates: start: 20091016, end: 20091026
  2. ARICEPT [Suspect]
     Route: 048
     Dates: start: 20091112
  3. RANITIDINE HCL [Concomitant]
     Indication: GASTROOESOPHAGEAL REFLUX DISEASE
  4. MIRTAZAPINE [Concomitant]
     Indication: DEPRESSION
     Dates: start: 20090801

REACTIONS (3)
  - CONFABULATION [None]
  - DELIRIUM [None]
  - HEADACHE [None]
